FAERS Safety Report 4534455-9 (Version None)
Quarter: 2004Q4

REPORT INFORMATION
  Report Type: 
  Country: None (occurrence: None)
  Receive Date: 20041214
  Receipt Date: 20041101
  Transmission Date: 20050328
  Serious: No
  Sender: FDA-Public Use
  Company Number: 2004242769US

PATIENT
  Age: 50 Year
  Sex: Female
  Weight: 58.5 kg

DRUGS (6)
  1. BEXTRA [Suspect]
     Dates: start: 20031124, end: 20031204
  2. IBUPROFEN [Concomitant]
  3. PROGESTERONE [Concomitant]
  4. DHEA (PRASTERONE) [Concomitant]
  5. TESTOSTERONE (TESTOTERONE) [Concomitant]
  6. BI-EST [Concomitant]

REACTIONS (4)
  - DROOLING [None]
  - DRUG INEFFECTIVE [None]
  - STOMATITIS [None]
  - SWELLING FACE [None]
